FAERS Safety Report 4976459-8 (Version None)
Quarter: 2006Q2

REPORT INFORMATION
  Report Type: 
  Country: None (occurrence: None)
  Receive Date: 20060419
  Receipt Date: 20060407
  Transmission Date: 20061013
  Serious: Yes (Hospitalization)
  Sender: FDA-Public Use
  Company Number: US-ROCHE-443590

PATIENT
  Age: 79 Year
  Sex: Male

DRUGS (3)
  1. CAPECITABINE [Suspect]
     Indication: PANCREATIC CARCINOMA
     Route: 048
     Dates: start: 20050427
  2. AVASTIN [Suspect]
     Indication: PANCREATIC CARCINOMA
     Route: 042
     Dates: start: 20050427
  3. GEMCITABINE [Suspect]
     Indication: PANCREATIC CARCINOMA
     Route: 042
     Dates: start: 20050427

REACTIONS (5)
  - GASTRIC VARICES [None]
  - HAEMATURIA [None]
  - HYDRONEPHROSIS [None]
  - PROSTATE EXAMINATION ABNORMAL [None]
  - VARICES OESOPHAGEAL [None]
